FAERS Safety Report 6112191-5 (Version None)
Quarter: 2009Q1

REPORT INFORMATION
  Report Type: 
  Country: None (occurrence: None)
  Receive Date: 20090310
  Receipt Date: 20090226
  Transmission Date: 20090719
  Serious: Yes (Other)
  Sender: FDA-Public Use
  Company Number: 2009-192364-NL

PATIENT
  Age: 32 Year
  Sex: Female
  Weight: 64.9 kg

DRUGS (1)
  1. IMPLANON [Suspect]
     Indication: CONTRACEPTION
     Dosage: SUBDERMAL
     Route: 059
     Dates: start: 20071219, end: 20090220

REACTIONS (4)
  - IRRITABILITY [None]
  - PANIC ATTACK [None]
  - PULMONARY EMBOLISM [None]
  - SINUSITIS [None]
